FAERS Safety Report 5948066-1 (Version None)
Quarter: 2008Q4

REPORT INFORMATION
  Report Type: 
  Country: None (occurrence: None)
  Receive Date: 20081111
  Receipt Date: 20081008
  Transmission Date: 20090506
  Serious: No
  Sender: FDA-Public Use
  Company Number: US-BAYER-200835314NA

PATIENT
  Age: 36 Year
  Sex: Female

DRUGS (3)
  1. ULTRAVIST 300 [Suspect]
     Indication: COMPUTERISED TOMOGRAM ABDOMEN
     Dosage: TOTAL DAILY DOSE: 100 ML  UNIT DOSE: 100 ML
     Route: 042
     Dates: start: 20080930, end: 20080930
  2. LOESTRIN FE [Concomitant]
  3. VALTREX [Concomitant]

REACTIONS (3)
  - DYSPNOEA [None]
  - LACRIMATION INCREASED [None]
  - URTICARIA [None]
